FAERS Safety Report 10270302 (Version 1)
Quarter: 2014Q2

REPORT INFORMATION
  Report Type: Spontaneous
  Country: US (occurrence: None)
  Receive Date: 20140627
  Receipt Date: 20140627
  Transmission Date: 20141212
  Serious: Yes (Other)
  Sender: FDA-Public Use
  Company Number: None

PATIENT
  Age: 3 Year
  Sex: Male

DRUGS (1)
  1. TRILEPTAL 300MG/5ML [Suspect]
     Indication: EPILEPSY
     Route: 048
     Dates: start: 20110510

REACTIONS (1)
  - Convulsion [None]
